FAERS Safety Report 11718792 (Version 1)
Quarter: 2015Q4

REPORT INFORMATION
  Report Type: Spontaneous
  Country: US (occurrence: None)
  Receive Date: 20151109
  Receipt Date: 20151109
  Transmission Date: 20160304
  Serious: No
  Sender: FDA-Public Use
  Company Number: US-MDT-ADR-2015-02106

PATIENT
  Age: 57 Year
  Sex: Male

DRUGS (2)
  1. VALIUM [Suspect]
     Active Substance: DIAZEPAM
  2. BACLOFEN INTRATHECAL [Suspect]
     Active Substance: BACLOFEN

REACTIONS (5)
  - Procedural complication [None]
  - Neck pain [None]
  - Muscle spasms [None]
  - Spinal cord disorder [None]
  - Myalgia [None]
